FAERS Safety Report 25855187 (Version 1)
Quarter: 2025Q3

REPORT INFORMATION
  Report Type: Spontaneous
  Country: AU (occurrence: AU)
  Receive Date: 20250927
  Receipt Date: 20250927
  Transmission Date: 20251021
  Serious: Yes (Life-Threatening, Hospitalization, Other)
  Sender: MICRO LABS
  Company Number: AU-862174955-ML2025-04886

PATIENT
  Age: 24 Year
  Sex: Male

DRUGS (3)
  1. BACLOFEN [Suspect]
     Active Substance: BACLOFEN
     Indication: Alcohol use disorder
     Dosage: BACLOFEN WAS 10 MG 3 TIMES A DAY STARTED 4 MONTHS AGO
     Route: 048
  2. BACLOFEN [Suspect]
     Active Substance: BACLOFEN
  3. ESCITALOPRAM [Suspect]
     Active Substance: ESCITALOPRAM OXALATE
     Indication: Product used for unknown indication
     Dosage: ESCITALOPRAM 20 MG DAILY, BOTH COMMENCED 4 MONTHS AGO
     Route: 048

REACTIONS (8)
  - Bradyarrhythmia [Recovered/Resolved]
  - Low cardiac output syndrome [Recovered/Resolved]
  - Toxicity to various agents [Recovered/Resolved]
  - Mental status changes [Recovered/Resolved]
  - Overdose [Unknown]
  - Drug withdrawal syndrome [Recovered/Resolved]
  - Hypotension [Recovered/Resolved]
  - Off label use [Unknown]
